FAERS Safety Report 16138195 (Version 1)
Quarter: 2019Q1

REPORT INFORMATION
  Report Type: Spontaneous
  Country: FR (occurrence: FR)
  Receive Date: 20190330
  Receipt Date: 20190330
  Transmission Date: 20190418
  Serious: Yes (Hospitalization)
  Sender: FDA-Public Use
  Company Number: FR-ACCORD-116429

PATIENT
  Age: 82 Year
  Sex: Male
  Weight: 69 kg

DRUGS (19)
  1. ARANESP [Concomitant]
     Active Substance: DARBEPOETIN ALFA
  2. NOVOMIX [Concomitant]
     Active Substance: INSULIN ASPART
  3. KAYEXALATE [Concomitant]
     Active Substance: SODIUM POLYSTYRENE SULFONATE
     Dosage: OWDER FOR ORAL AND RECTAL SUSPENSION
  4. TARDYFERON B9 [Concomitant]
  5. ORACILLINE [Concomitant]
     Active Substance: PENICILLIN V
  6. ATARAX [Concomitant]
     Active Substance: HYDROXYZINE HYDROCHLORIDE
  7. CALCIDIA [Concomitant]
     Active Substance: CALCIUM CARBONATE
  8. NOVORAPID [Concomitant]
     Active Substance: INSULIN ASPART
  9. XATRAL [Concomitant]
     Active Substance: ALFUZOSIN
  10. RIVOTRIL [Suspect]
     Active Substance: CLONAZEPAM
     Indication: PRODUCT USED FOR UNKNOWN INDICATION
     Route: 048
     Dates: end: 20160209
  11. TRIATEC (RAMIPRIL) [Suspect]
     Active Substance: RAMIPRIL
     Indication: HYPERTENSION
     Dosage: STRENGTH : 1.25 MG
     Route: 048
     Dates: end: 20160209
  12. HEMIGOXINE NATIVELLE [Suspect]
     Active Substance: DIGOXIN
     Indication: ATRIAL FIBRILLATION
     Route: 048
     Dates: end: 20160209
  13. CEFIXIME/CEFIXIME TRIHYDRATE [Suspect]
     Active Substance: CEFIXIME
     Indication: URINARY TRACT INFECTION
     Route: 048
     Dates: start: 20160208, end: 20160209
  14. OGASTORO [Concomitant]
     Active Substance: LANSOPRAZOLE
  15. ALLOPURINOL. [Suspect]
     Active Substance: ALLOPURINOL
     Indication: PRODUCT USED FOR UNKNOWN INDICATION
     Route: 048
     Dates: end: 20160209
  16. LASILIX [Suspect]
     Active Substance: FUROSEMIDE
     Indication: HYPERTENSION
     Route: 048
     Dates: end: 20160209
  17. MYFORTIC [Concomitant]
     Active Substance: MYCOPHENOLATE SODIUM
  18. DELURSAN [Concomitant]
     Active Substance: URSODIOL
  19. UN-ALFA [Concomitant]
     Active Substance: ALFACALCIDOL

REACTIONS (3)
  - Acute kidney injury [Recovered/Resolved]
  - Orthostatic hypotension [Recovered/Resolved]
  - Confusional state [Recovered/Resolved]

NARRATIVE: CASE EVENT DATE: 20160208
